FAERS Safety Report 10733135 (Version 1)
Quarter: 2015Q1

REPORT INFORMATION
  Report Type: Report from Study
  Country: JP (occurrence: JP)
  Receive Date: 20150123
  Receipt Date: 20150123
  Transmission Date: 20150721
  Serious: Yes (Hospitalization)
  Sender: FDA-Public Use
  Company Number: JP-SA-THYR-1000890

PATIENT
  Age: 79 Year
  Sex: Female
  Weight: 56.6 kg

DRUGS (7)
  1. SODIUM IODIDE (131 I) [Concomitant]
     Indication: THERAPEUTIC PROCEDURE
     Dosage: 100 MCI, UNK
     Route: 065
     Dates: start: 20121203, end: 20121203
  2. THYROTROPIN ALFA [Suspect]
     Active Substance: THYROTROPIN ALFA
     Indication: THERAPEUTIC PROCEDURE
     Dosage: 0.9 MG, QD
     Route: 065
     Dates: start: 20121201, end: 20121202
  3. PITAVASTATIN CALCIUM [Concomitant]
     Active Substance: PITAVASTATIN CALCIUM
     Indication: HYPERLIPIDAEMIA
     Dosage: 2 MG, UNK
     Route: 065
  4. MILNACIPRAN HYDROCHLORIDE. [Concomitant]
     Active Substance: MILNACIPRAN HYDROCHLORIDE
     Indication: DEPRESSION
     Dosage: 15 MG, UNK
     Route: 048
  5. IODINE (131 I) [Concomitant]
     Active Substance: SODIUM IODIDE I-131
     Indication: THERAPEUTIC PROCEDURE
     Dates: start: 20121203
  6. FLUDIAZEPAM [Concomitant]
     Active Substance: FLUDIAZEPAM
     Indication: DEPRESSION
     Dosage: 15 MG, UNK
     Route: 048
  7. LEVOTHYROXINE SODIUM. [Concomitant]
     Active Substance: LEVOTHYROXINE SODIUM
     Dosage: 75 MCG, QD
     Route: 048

REACTIONS (3)
  - Atrial fibrillation [Recovered/Resolved]
  - Pleural effusion [Recovered/Resolved]
  - Pyrexia [Recovered/Resolved]

NARRATIVE: CASE EVENT DATE: 20121204
